FAERS Safety Report 25974338 (Version 4)
Quarter: 2025Q4

REPORT INFORMATION
  Report Type: Spontaneous
  Country: US (occurrence: US)
  Receive Date: 20251029
  Receipt Date: 20251216
  Transmission Date: 20260118
  Serious: Yes (Disabling, Other)
  Sender: GILEAD
  Company Number: US-GILEAD-2025-0734375

PATIENT
  Sex: Male

DRUGS (3)
  1. YEZTUGO [Suspect]
     Active Substance: LENACAPAVIR SODIUM
     Indication: Product used for unknown indication
     Dosage: UNK TABLETS
     Route: 065
  2. YEZTUGO [Suspect]
     Active Substance: LENACAPAVIR SODIUM
     Indication: Product used for unknown indication
     Dosage: UNK INJECTION
     Route: 065
     Dates: start: 20251027, end: 20251027
  3. YEZTUGO [Suspect]
     Active Substance: LENACAPAVIR SODIUM
     Dosage: AN ADDITIONAL DOSE, INJECTION
     Route: 065
     Dates: start: 20251027, end: 20251027

REACTIONS (2)
  - Injection site discharge [Unknown]
  - Extra dose administered [Recovered/Resolved]

NARRATIVE: CASE EVENT DATE: 20251027
